FAERS Safety Report 8971197 (Version 1)
Quarter: 2012Q4

REPORT INFORMATION
  Report Type: 
  Country: US (occurrence: US)
  Receive Date: 20121218
  Receipt Date: 20121218
  Transmission Date: 20130627
  Serious: Yes (Hospitalization)
  Sender: FDA-Public Use
  Company Number: US-BAYER-2012-129230

PATIENT
  Age: 37 Year
  Sex: Female

DRUGS (7)
  1. YASMIN [Suspect]
  2. OCELLA [Suspect]
  3. EFFEXOR XR [Concomitant]
     Dosage: 75 mg, HS
     Route: 048
  4. PROVIGIL [Concomitant]
     Dosage: 200 mg,AM
     Route: 048
  5. TOPAMAX [Concomitant]
     Dosage: 100 mg, HS
     Route: 048
  6. VITAMIN D [Concomitant]
     Dosage: AM
     Route: 048
  7. PREDNISONE [Concomitant]
     Dosage: 10 mg, UNK

REACTIONS (2)
  - Deep vein thrombosis [None]
  - Pulmonary embolism [None]
